FAERS Safety Report 6964864-X (Version None)
Quarter: 2010Q3

REPORT INFORMATION
  Report Type: 
  Country: None (occurrence: None)
  Receive Date: 20100903
  Receipt Date: 20100830
  Transmission Date: 20110219
  Serious: Yes (Other)
  Sender: FDA-Public Use
  Company Number: FR-BRISTOL-MYERS SQUIBB COMPANY-15261860

PATIENT
  Age: 45 Year
  Sex: Male

DRUGS (2)
  1. COAPROVEL [Suspect]
     Indication: HYPERTENSION
     Dosage: 1 DF: 300 MG / 25 MG ,PREVIOUSLY 150 MG / 12.5 MG FROM APR-2010
     Dates: start: 20100701, end: 20100827
  2. DILTIAZEM [Suspect]
     Indication: HYPERTENSION
     Dosage: PREVIOUSLY 200 MG/D FROM APR-2010.
     Dates: start: 20100701

REACTIONS (3)
  - BLOOD CREATINE PHOSPHOKINASE INCREASED [None]
  - HYPOKALAEMIA [None]
  - MYALGIA [None]
